FAERS Safety Report 14858440 (Version 1)
Quarter: 2018Q2

REPORT INFORMATION
  Report Type: Spontaneous
  Country: FR (occurrence: FR)
  Receive Date: 20180508
  Receipt Date: 20180508
  Transmission Date: 20180711
  Serious: Yes (Other)
  Sender: FDA-Public Use
  Company Number: FR-MERCK KGAA-2047361

PATIENT
  Age: 25 Year
  Sex: Female
  Weight: 47 kg

DRUGS (1)
  1. NOVOTHYROX [Suspect]
     Active Substance: LEVOTHYROXINE SODIUM
     Indication: HYPOTHYROIDISM
     Route: 048
     Dates: start: 20170524

REACTIONS (29)
  - Abdominal pain upper [Not Recovered/Not Resolved]
  - Alopecia [None]
  - Fatigue [Not Recovered/Not Resolved]
  - Amnesia [Not Recovered/Not Resolved]
  - Dizziness [None]
  - Asthenia [Not Recovered/Not Resolved]
  - Agitation [None]
  - Emotional distress [None]
  - Social avoidant behaviour [None]
  - Diabetes mellitus [Not Recovered/Not Resolved]
  - Glycosylated haemoglobin increased [Not Recovered/Not Resolved]
  - Asthenia [None]
  - Decreased appetite [Not Recovered/Not Resolved]
  - Weight decreased [Not Recovered/Not Resolved]
  - Anxiety [None]
  - Memory impairment [None]
  - Loss of personal independence in daily activities [Not Recovered/Not Resolved]
  - Aggression [None]
  - Somnolence [None]
  - Nausea [Not Recovered/Not Resolved]
  - Presyncope [Not Recovered/Not Resolved]
  - Headache [None]
  - Mood altered [None]
  - Dry eye [Not Recovered/Not Resolved]
  - Hyperglycaemia [None]
  - Impaired driving ability [None]
  - Disturbance in attention [None]
  - Stress [None]
  - Blood thyroid stimulating hormone increased [None]

NARRATIVE: CASE EVENT DATE: 2017
